FAERS Safety Report 9591151 (Version 1)
Quarter: 2013Q4

REPORT INFORMATION
  Report Type: Spontaneous
  Country: US (occurrence: US)
  Receive Date: 20131003
  Receipt Date: 20131003
  Transmission Date: 20140711
  Serious: No
  Sender: FDA-Public Use
  Company Number: US-AMGEN-USASP2012078854

PATIENT
  Age: 70 Year
  Sex: Male

DRUGS (1)
  1. ENBREL [Suspect]
     Indication: ANKYLOSING SPONDYLITIS
     Dosage: 50 MG, QWK
     Route: 058
     Dates: start: 200212

REACTIONS (5)
  - Infection [Unknown]
  - Tooth abscess [Unknown]
  - Sinusitis [Unknown]
  - Nasopharyngitis [Unknown]
  - Clostridium difficile infection [Unknown]
